FAERS Safety Report 16775635 (Version 2)
Quarter: 2019Q3

REPORT INFORMATION
  Report Type: Spontaneous
  Country: JP (occurrence: JP)
  Receive Date: 20190905
  Receipt Date: 20190919
  Transmission Date: 20191005
  Serious: Yes (Hospitalization)
  Sender: FDA-Public Use
  Company Number: JP-ASTRAZENECA-2019SF10937

PATIENT
  Age: 57 Year
  Sex: Female
  Weight: 49 kg

DRUGS (2)
  1. GOSHAJINKIGAN [Concomitant]
     Active Substance: HERBALS
     Indication: HYPOAESTHESIA
     Route: 048
     Dates: start: 201704
  2. LYNPARZA [Suspect]
     Active Substance: OLAPARIB
     Indication: OVARIAN CANCER
     Route: 048
     Dates: start: 20190507, end: 20190816

REACTIONS (1)
  - Interstitial lung disease [Unknown]

NARRATIVE: CASE EVENT DATE: 2019
